FAERS Safety Report 7745756-5 (Version None)
Quarter: 2011Q3

REPORT INFORMATION
  Report Type: 
  Country: None (occurrence: None)
  Receive Date: 20110913
  Receipt Date: 20110830
  Transmission Date: 20111222
  Serious: Yes (Hospitalization, Other)
  Sender: FDA-Public Use
  Company Number: AU-AMGEN-AUSSP2011039464

PATIENT
  Age: 5 Year
  Sex: Female
  Weight: 18 kg

DRUGS (4)
  1. METHOTREXATE SODIUM [Suspect]
     Indication: JUVENILE ARTHRITIS
  2. METHOTREXATE SODIUM [Suspect]
     Indication: RHEUMATOID ARTHRITIS
     Dosage: 10 MG, WEEKLY
     Route: 048
     Dates: start: 20110301
  3. ENBREL [Suspect]
     Indication: RHEUMATOID ARTHRITIS
     Dosage: 7.5 MG, 2X/WEEK
     Route: 058
     Dates: start: 20110601
  4. ENBREL [Suspect]
     Indication: JUVENILE ARTHRITIS
     Dosage: UNK

REACTIONS (4)
  - INJECTION SITE MASS [None]
  - INJECTION SITE ERYTHEMA [None]
  - INFECTION [None]
  - OEDEMA PERIPHERAL [None]
